FAERS Safety Report 7981459-X (Version None)
Quarter: 2011Q4

REPORT INFORMATION
  Report Type: 
  Country: None (occurrence: None)
  Receive Date: 20111215
  Receipt Date: 20111208
  Transmission Date: 20120403
  Serious: Yes (Other)
  Sender: FDA-Public Use
  Company Number: SE-TEVA-313179ISR

PATIENT
  Age: 92 Year
  Sex: Male

DRUGS (2)
  1. ATARAX [Concomitant]
  2. OXAZEPAM [Suspect]
     Route: 048

REACTIONS (1)
  - LOSS OF CONSCIOUSNESS [None]
